FAERS Safety Report 5936017-5 (Version None)
Quarter: 2008Q4

REPORT INFORMATION
  Report Type: 
  Country: None (occurrence: None)
  Receive Date: 20081030
  Receipt Date: 20080613
  Transmission Date: 20090506
  Serious: No
  Sender: FDA-Public Use
  Company Number: US-BAYER-200812758BCC

PATIENT
  Age: 69 Year
  Sex: Female
  Weight: 102 kg

DRUGS (6)
  1. ALEVE [Suspect]
     Indication: ARTHRITIS
     Route: 048
     Dates: start: 20020101
  2. ONE A DAY [Concomitant]
     Dates: start: 20080605, end: 20080613
  3. COD LIVER OIL [Concomitant]
  4. VITAMINS [Concomitant]
  5. FISH OIL [Concomitant]
  6. OSCAL PLUS D [Concomitant]

REACTIONS (1)
  - SWELLING [None]
